FAERS Safety Report 19627074 (Version 1)
Quarter: 2021Q3

REPORT INFORMATION
  Report Type: Spontaneous
  Country: GB (occurrence: GB)
  Receive Date: 20210729
  Receipt Date: 20210729
  Transmission Date: 20211014
  Serious: Yes (Other)
  Sender: FDA-Public Use
  Company Number: GB-MYLANLABS-2021M1045648

PATIENT
  Age: 76 Year
  Sex: Male

DRUGS (7)
  1. ASTRAZENECA COVID?19 VACCINE [Suspect]
     Active Substance: AZD-1222
     Dosage: DOSE 2
     Dates: start: 20210605
  2. LANSOPRAZOLE MYLAN [Suspect]
     Active Substance: LANSOPRAZOLE
     Indication: PRODUCT USED FOR UNKNOWN INDICATION
  3. FLECAINIDE [Concomitant]
     Active Substance: FLECAINIDE
     Indication: EXTRASYSTOLES
  4. SOLPADOL                           /00116401/ [Concomitant]
     Active Substance: ACETAMINOPHEN\CODEINE PHOSPHATE
     Indication: PAIN
  5. SODIUM ALGINATE [Concomitant]
     Active Substance: SODIUM ALGINATE
     Indication: GASTROOESOPHAGEAL REFLUX DISEASE
  6. PARACETAMOL [Concomitant]
     Active Substance: ACETAMINOPHEN
     Indication: PAIN
  7. ASTRAZENECA COVID?19 VACCINE [Suspect]
     Active Substance: AZD-1222
     Indication: PRODUCT USED FOR UNKNOWN INDICATION
     Dosage: DOSE 1
     Dates: start: 20210306

REACTIONS (2)
  - Skin reaction [Not Recovered/Not Resolved]
  - Pruritus [Recovering/Resolving]
